FAERS Safety Report 6179403-3 (Version None)
Quarter: 2009Q2

REPORT INFORMATION
  Report Type: 
  Country: None (occurrence: None)
  Receive Date: 20090505
  Receipt Date: 20090427
  Transmission Date: 20091009
  Serious: Yes (Death)
  Sender: FDA-Public Use
  Company Number: A0778436A

PATIENT
  Age: 61 Year
  Sex: Female

DRUGS (9)
  1. COREG [Suspect]
     Indication: DRUG USE FOR UNKNOWN INDICATION
     Dosage: 20MG PER DAY
     Route: 048
  2. SIMVASTATIN [Concomitant]
  3. LISINOPRIL [Concomitant]
  4. LANTUS [Concomitant]
  5. ISOSORBIDE [Concomitant]
  6. PAXIL [Concomitant]
  7. DIAZEPAM [Concomitant]
  8. POTASSIUM CL [Concomitant]
  9. HYDROCHLOROTHIAZIDE [Concomitant]

REACTIONS (1)
  - DEATH [None]
